FAERS Safety Report 9204925 (Version 1)
Quarter: 2013Q2

REPORT INFORMATION
  Report Type: Spontaneous
  Country: CA (occurrence: CA)
  Receive Date: 20130402
  Receipt Date: 20130402
  Transmission Date: 20140414
  Serious: Yes (Life-Threatening)
  Sender: FDA-Public Use
  Company Number: CHPA2013CA005658

PATIENT
  Sex: Male

DRUGS (1)
  1. BUCKLEY^S UNKNOWN [Suspect]
     Indication: RESPIRATORY TRACT CONGESTION
     Dosage: UNK, UNK
     Route: 048

REACTIONS (2)
  - Cardiac disorder [Unknown]
  - Respiratory tract congestion [Unknown]
